FAERS Safety Report 12286165 (Version 2)
Quarter: 2016Q2

REPORT INFORMATION
  Report Type: Spontaneous
  Country: US (occurrence: US)
  Receive Date: 20160420
  Receipt Date: 20160425
  Transmission Date: 20160815
  Serious: No
  Sender: FDA-Public Use
  Company Number: US-JNJFOC-20160409244

PATIENT
  Age: 28 Year
  Sex: Female
  Weight: 54.43 kg

DRUGS (1)
  1. STELARA [Suspect]
     Active Substance: USTEKINUMAB
     Indication: ERYTHRODERMIC PSORIASIS
     Dosage: 2-3 MONTHS
     Route: 058

REACTIONS (5)
  - Incorrect product storage [Unknown]
  - Erythrodermic psoriasis [Not Recovered/Not Resolved]
  - Off label use [Unknown]
  - Poor quality drug administered [Unknown]
  - Product use issue [Unknown]

NARRATIVE: CASE EVENT DATE: 20160410
